FAERS Safety Report 21783980 (Version 1)
Quarter: 2022Q4

REPORT INFORMATION
  Report Type: Spontaneous
  Country: US (occurrence: US)
  Receive Date: 20221227
  Receipt Date: 20221227
  Transmission Date: 20230112
  Serious: No
  Sender: FDA-Public Use
  Company Number: US-PFIZER INC-202201392174

PATIENT
  Age: 73 Year
  Sex: Male
  Weight: 76.644 kg

DRUGS (9)
  1. TOVIAZ [Suspect]
     Active Substance: FESOTERODINE FUMARATE
     Indication: Urge incontinence
     Dosage: 8 MG, DAILY (1 TABLET DAILY)
     Route: 048
  2. TOVIAZ [Suspect]
     Active Substance: FESOTERODINE FUMARATE
     Indication: Stress urinary incontinence
  3. TOVIAZ [Suspect]
     Active Substance: FESOTERODINE FUMARATE
     Indication: Erectile dysfunction
  4. TOVIAZ [Suspect]
     Active Substance: FESOTERODINE FUMARATE
     Indication: Prostate cancer
  5. TOVIAZ [Suspect]
     Active Substance: FESOTERODINE FUMARATE
     Indication: Organic erectile dysfunction
  6. MYRBETRIQ [Suspect]
     Active Substance: MIRABEGRON
     Indication: Stress urinary incontinence
     Dosage: UNK
  7. MYRBETRIQ [Suspect]
     Active Substance: MIRABEGRON
     Indication: Urge incontinence
  8. SILDENAFIL CITRATE [Concomitant]
     Active Substance: SILDENAFIL CITRATE
     Indication: Erectile dysfunction
     Dosage: 1 TO 5 PILLS QD PRN 1 HOUR PRIOR TO INTERCOURSE ON AN EMPTY STOMACH
  9. FESOTERODINE FUMARATE [Concomitant]
     Active Substance: FESOTERODINE FUMARATE
     Dosage: 1 DF, DAILY
     Route: 048

REACTIONS (1)
  - Drug ineffective [Unknown]
